FAERS Safety Report 5193406-7 (Version None)
Quarter: 2006Q4

REPORT INFORMATION
  Report Type: 
  Country: None (occurrence: None)
  Receive Date: 20061228
  Receipt Date: 20060414
  Transmission Date: 20070319
  Serious: No
  Sender: FDA-Public Use
  Company Number: US-GLAXOSMITHKLINE-A0601822A

PATIENT
  Age: 93 Year
  Sex: Male

DRUGS (1)
  1. FLONASE [Suspect]
     Dosage: 1SPR PER DAY
     Route: 045
     Dates: start: 20060301

REACTIONS (1)
  - DRUG INEFFECTIVE [None]
